FAERS Safety Report 18750285 (Version 1)
Quarter: 2021Q1

REPORT INFORMATION
  Report Type: Report from Study
  Country: CA (occurrence: CA)
  Receive Date: 20210118
  Receipt Date: 20210118
  Transmission Date: 20210419
  Serious: Yes (Other)
  Sender: FDA-Public Use
  Company Number: CA-ACCORD-214405

PATIENT
  Sex: Female

DRUGS (10)
  1. HYDROXYCHLOROQUINE [Concomitant]
     Active Substance: HYDROXYCHLOROQUINE
  2. PREDNISONE. [Concomitant]
     Active Substance: PREDNISONE
  3. MYCOPHENOLIC ACID. [Suspect]
     Active Substance: MYCOPHENOLIC ACID
     Indication: LUNG DISORDER
     Route: 065
  4. L?THYROXINE [Concomitant]
     Active Substance: LEVOTHYROXINE
  5. AMLODIPINE [Concomitant]
     Active Substance: AMLODIPINE BESYLATE
  6. NIFEDIPINE. [Concomitant]
     Active Substance: NIFEDIPINE
     Indication: RAYNAUD^S PHENOMENON
  7. AVAMYS [Concomitant]
     Active Substance: FLUTICASONE FUROATE
  8. FLOVENT [Concomitant]
     Active Substance: FLUTICASONE PROPIONATE
  9. SALAZOPYRIN [Concomitant]
     Active Substance: SULFASALAZINE
  10. VENTOLIN [Concomitant]
     Active Substance: ALBUTEROL SULFATE

REACTIONS (24)
  - Infection [Unknown]
  - Joint swelling [Unknown]
  - Neoplasm [Unknown]
  - Pyrexia [Unknown]
  - Tuberculin test positive [Unknown]
  - Off label use [Unknown]
  - Rales [Unknown]
  - Skin burning sensation [Unknown]
  - Urinary tract infection [Unknown]
  - Ill-defined disorder [Unknown]
  - Muscular weakness [Unknown]
  - Dry eye [Unknown]
  - Oropharyngeal pain [Unknown]
  - Dyspnoea exertional [Unknown]
  - Pain in extremity [Unknown]
  - Pain in jaw [Unknown]
  - Sinus pain [Unknown]
  - Investigation abnormal [Unknown]
  - Peripheral swelling [Unknown]
  - Restrictive pulmonary disease [Unknown]
  - Crepitations [Unknown]
  - Finger deformity [Unknown]
  - Platelet count increased [Unknown]
  - Rash [Unknown]
